FAERS Safety Report 19285581 (Version 7)
Quarter: 2021Q4

REPORT INFORMATION
  Report Type: Report from Study
  Country: JP (occurrence: JP)
  Receive Date: 20210521
  Receipt Date: 20211208
  Transmission Date: 20220303
  Serious: Yes (Hospitalization)
  Sender: FDA-Public Use
  Company Number: NVSC2021JP113123

PATIENT
  Age: 72 Year
  Sex: Male
  Weight: 62.4 kg

DRUGS (16)
  1. BEOVU [Suspect]
     Active Substance: BROLUCIZUMAB-DBLL
     Indication: Retinal vein occlusion
     Dosage: 6 MG, Q4W
     Route: 031
     Dates: start: 20200303, end: 20210427
  2. DIQUAFOSOL TETRASODIUM [Concomitant]
     Active Substance: DIQUAFOSOL TETRASODIUM
     Indication: Foreign body sensation in eyes
     Dosage: SOLUTION, UNK
     Route: 047
     Dates: start: 20201111
  3. OPALMON [Concomitant]
     Active Substance: LIMAPROST
     Indication: Spondylolisthesis
     Dosage: UNK
     Route: 065
     Dates: start: 20050101
  4. CELECOXIB [Concomitant]
     Active Substance: CELECOXIB
     Indication: Arthralgia
     Dosage: UNK
     Route: 065
     Dates: start: 20210301
  5. REBAMIPIDE [Concomitant]
     Active Substance: REBAMIPIDE
     Indication: Prophylaxis
     Dosage: UNK
     Route: 065
     Dates: start: 20210301
  6. PREDNISOLONE [Concomitant]
     Active Substance: PREDNISOLONE
     Indication: Retinal vascular occlusion
     Dosage: UNK
     Route: 065
     Dates: start: 20210519
  7. TRIAMCINOLONE ACETONIDE [Concomitant]
     Active Substance: TRIAMCINOLONE ACETONIDE
     Indication: Retinal vascular occlusion
     Dosage: UNK
     Route: 065
     Dates: start: 20210518, end: 20210518
  8. BETAMETHASONE SODIUM PHOSPHATE [Concomitant]
     Active Substance: BETAMETHASONE SODIUM PHOSPHATE
     Indication: Retinal vascular occlusion
     Dosage: ANDOTORHINOLOGIC SOLUTION
     Route: 047
     Dates: start: 20210518
  9. FLUOROMETHOLONE [Concomitant]
     Active Substance: FLUOROMETHOLONE
     Indication: Prophylaxis
     Dosage: UNK
     Route: 047
     Dates: start: 20210518, end: 20210629
  10. KALLIDINOGENASE [Concomitant]
     Active Substance: KALLIDINOGENASE
     Indication: Retinal vein occlusion
     Dosage: 50 UNITS
     Route: 065
     Dates: start: 20200205
  11. SEIROGAN [Concomitant]
     Indication: Prophylaxis
     Dosage: UNK
     Route: 065
     Dates: start: 19900101
  12. KETOPROFEN [Concomitant]
     Active Substance: KETOPROFEN
     Indication: Spondylolisthesis
     Dosage: 120 MG
     Route: 065
     Dates: start: 20050101
  13. LOXOPROFEN SODIUM [Concomitant]
     Active Substance: LOXOPROFEN SODIUM
     Indication: Spondylolisthesis
     Dosage: UNK
     Route: 065
     Dates: start: 20050101
  14. ALPHAGAN P [Concomitant]
     Active Substance: BRIMONIDINE TARTRATE
     Indication: Glaucoma
     Dosage: UNK
     Route: 047
     Dates: start: 20201111
  15. BIMATOPROST [Concomitant]
     Active Substance: BIMATOPROST
     Indication: Glaucoma
     Dosage: UNK
     Route: 047
     Dates: start: 20201111
  16. CARBAZOCHROME SODIUM SULFONATE [Concomitant]
     Active Substance: CARBAZOCHROME SODIUM SULFONATE
     Indication: Retinal vein occlusion
     Dosage: 30 MG
     Route: 065
     Dates: start: 20200205

REACTIONS (1)
  - Vitritis [Recovered/Resolved]

NARRATIVE: CASE EVENT DATE: 20210518
